FAERS Safety Report 5812250-8 (Version None)
Quarter: 2008Q3

REPORT INFORMATION
  Report Type: 
  Country: None (occurrence: None)
  Receive Date: 20080716
  Receipt Date: 20080708
  Transmission Date: 20090109
  Serious: Yes (Hospitalization, Other)
  Sender: FDA-Public Use
  Company Number: US-MERCK-0705USA02855

PATIENT
  Age: 63 Year
  Sex: Female
  Weight: 63 kg

DRUGS (7)
  1. FOSAMAX [Suspect]
     Indication: OSTEOPOROSIS
     Route: 048
     Dates: start: 20010101, end: 20060501
  2. FOSAMAX [Suspect]
     Indication: OSTEOPENIA
     Route: 048
     Dates: start: 20010101, end: 20060501
  3. DIOVAN [Suspect]
     Route: 065
  4. PREDNISONE [Concomitant]
     Route: 065
  5. ACTONEL [Suspect]
     Route: 065
  6. CALCIUM (UNSPECIFIED) [Concomitant]
     Route: 065
  7. VITAMIN D (UNSPECIFIED) [Concomitant]
     Route: 065

REACTIONS (55)
  - ADVERSE DRUG REACTION [None]
  - ANXIETY [None]
  - ARTHRITIS [None]
  - ARTHROPATHY [None]
  - BLOOD CHOLESTEROL INCREASED [None]
  - BRUXISM [None]
  - BUNDLE BRANCH BLOCK LEFT [None]
  - BURSITIS [None]
  - CARDIAC MURMUR [None]
  - CERUMEN IMPACTION [None]
  - CONSTIPATION [None]
  - DEEP VEIN THROMBOSIS [None]
  - DENTAL CARIES [None]
  - DIABETES MELLITUS [None]
  - DRUG INTOLERANCE [None]
  - DYSLIPIDAEMIA [None]
  - DYSPNOEA [None]
  - EAR PAIN [None]
  - ELECTROCARDIOGRAM ABNORMAL [None]
  - EPICONDYLITIS [None]
  - FATIGUE [None]
  - GASTRIC DISORDER [None]
  - GASTROOESOPHAGEAL REFLUX DISEASE [None]
  - HAEMORRHOIDS [None]
  - HEADACHE [None]
  - HYPERSENSITIVITY [None]
  - HYPERTENSION [None]
  - HYPOAESTHESIA ORAL [None]
  - INAPPROPRIATE SCHEDULE OF DRUG ADMINISTRATION [None]
  - JAW DISORDER [None]
  - JOINT SWELLING [None]
  - MAJOR DEPRESSION [None]
  - MEMORY IMPAIRMENT [None]
  - MUSCLE SPASMS [None]
  - MUSCULAR WEAKNESS [None]
  - NASOPHARYNGITIS [None]
  - NECK PAIN [None]
  - OSTEOARTHRITIS [None]
  - PAIN IN JAW [None]
  - PSYCHOSOMATIC DISEASE [None]
  - RADICULITIS CERVICAL [None]
  - RENAL CYST [None]
  - RENAL MASS [None]
  - RESTLESSNESS [None]
  - ROAD TRAFFIC ACCIDENT [None]
  - ROTATOR CUFF SYNDROME [None]
  - SPINAL OSTEOARTHRITIS [None]
  - STOMACH DISCOMFORT [None]
  - SWELLING [None]
  - SYNOVITIS [None]
  - TEMPOROMANDIBULAR JOINT SYNDROME [None]
  - TENDONITIS [None]
  - TOOTH IMPACTED [None]
  - TRIGEMINAL NEURALGIA [None]
  - VITAMIN D DEFICIENCY [None]
